FAERS Safety Report 7332105-X (Version None)
Quarter: 2011Q1

REPORT INFORMATION
  Report Type: 
  Country: None (occurrence: None)
  Receive Date: 20110222
  Receipt Date: 20110208
  Transmission Date: 20110831
  Serious: Yes (Hospitalization)
  Sender: FDA-Public Use
  Company Number: JP-2011-10096

PATIENT
  Age: 86 Year
  Sex: Male
  Weight: 47.5 kg

DRUGS (9)
  1. SAMSCA [Suspect]
     Indication: CARDIAC FAILURE CHRONIC
     Dosage: 15 MG MILLIGRAM(S), QD, ORAL
     Route: 048
     Dates: start: 20101216, end: 20101228
  2. TAKEPRON (LANSOPRAZOLE) [Concomitant]
  3. URINORM (BENZBROMARONE) [Concomitant]
  4. BISOPROLOL FUMARATE [Concomitant]
  5. ASPENON (APRINDINE HYDROCHLORIDE) [Concomitant]
  6. SELARA (EPLERENONE) [Concomitant]
  7. WARFARIN POTASSIUM (WARFARIN POTASSIUM) [Concomitant]
  8. LASIX [Suspect]
     Indication: CARDIAC FAILURE CHRONIC
     Dosage: (320 MG MILLIGRAM(S), QD, ORAL) (160 MG MILLIGRAM(S), QD, ORAL)
     Route: 048
     Dates: start: 20101104
  9. LASIX [Suspect]
     Indication: CARDIAC FAILURE CHRONIC
     Dosage: (320 MG MILLIGRAM(S), QD, ORAL) (160 MG MILLIGRAM(S), QD, ORAL)
     Route: 048
     Dates: start: 20100902

REACTIONS (1)
  - WHITE BLOOD CELL COUNT DECREASED [None]
